FAERS Safety Report 10783692 (Version 1)
Quarter: 2015Q1

REPORT INFORMATION
  Report Type: Spontaneous
  Country: CN (occurrence: CN)
  Receive Date: 20150210
  Receipt Date: 20150210
  Transmission Date: 20150721
  Serious: Yes (Death, Other)
  Sender: FDA-Public Use
  Company Number: CN-UNITED THERAPEUTICS-UNT-2015-001177

PATIENT
  Age: 38 Year
  Sex: Male
  Weight: 71 kg

DRUGS (2)
  1. REMODULIN [Suspect]
     Active Substance: TREPROSTINIL
     Dosage: 0.015 ?G/KG
     Route: 058
     Dates: start: 20150117, end: 20150130
  2. REMODULIN [Suspect]
     Active Substance: TREPROSTINIL
     Indication: PULMONARY ARTERIAL HYPERTENSION
     Dosage: 0.000625 ?G/KG, CONTINUING
     Route: 058
     Dates: start: 20141231

REACTIONS (8)
  - Oedema peripheral [Unknown]
  - Dyspnoea [Unknown]
  - Pleural effusion [Unknown]
  - Haemoptysis [Unknown]
  - Hepatic failure [Fatal]
  - Chest pain [Unknown]
  - Tracheal haemorrhage [Unknown]
  - Oxygen saturation decreased [Unknown]

NARRATIVE: CASE EVENT DATE: 20150129
